FAERS Safety Report 9498796 (Version 1)
Quarter: 2013Q3

REPORT INFORMATION
  Report Type: Spontaneous
  Country: US (occurrence: None)
  Receive Date: 20130830
  Receipt Date: 20130830
  Transmission Date: 20140515
  Serious: Yes (Other)
  Sender: FDA-Public Use
  Company Number: 2013AP007590

PATIENT
  Sex: Female

DRUGS (4)
  1. ALENDRONATE SODIUM TABLETS [Suspect]
     Indication: OSTEOPOROSIS
  2. ALENDRONATE SODIUM TABLETS [Suspect]
  3. ALENDRONATE SODIUM TABLETS [Suspect]
     Indication: OSTEOPOROSIS
  4. ALENDRONATE SODIUM TABLETS [Suspect]
     Indication: OSTEITIS DEFORMANS

REACTIONS (9)
  - Osteonecrosis of jaw [None]
  - Multiple injuries [None]
  - Anxiety [None]
  - Anxiety [None]
  - Mental disorder [None]
  - Pain [None]
  - Fear of disease [None]
  - Anhedonia [None]
  - Quality of life decreased [None]
